FAERS Safety Report 9093681 (Version 2)
Quarter: 2013Q1

REPORT INFORMATION
  Report Type: Spontaneous
  Country: US (occurrence: US)
  Receive Date: 20130219
  Receipt Date: 20130315
  Transmission Date: 20140127
  Serious: Yes (Other)
  Sender: FDA-Public Use
  Company Number: US-JNJFOC-20130206098

PATIENT
  Age: 50 Year
  Sex: Female

DRUGS (2)
  1. XARELTO [Suspect]
     Indication: HYPERCOAGULATION
     Route: 048
     Dates: start: 20121119
  2. XARELTO [Suspect]
     Indication: DEEP VEIN THROMBOSIS
     Route: 048
     Dates: start: 20121119

REACTIONS (1)
  - Deep vein thrombosis [Recovering/Resolving]
